FAERS Safety Report 6367337-0 (Version None)
Quarter: 2009Q3

REPORT INFORMATION
  Report Type: 
  Country: None (occurrence: None)
  Receive Date: 20090921
  Receipt Date: 20090914
  Transmission Date: 20100115
  Serious: Yes (Other)
  Sender: FDA-Public Use
  Company Number: RU-ROCHE-649563

PATIENT
  Age: 59 Year
  Sex: Female

DRUGS (2)
  1. XELODA [Suspect]
     Dosage: FREQUENCY REPORTED: DURING 2 WEEKS WITH A 7 DAY BREAK. NEXT DRUG INTAKE : 18 SEPTEMBER 2009.
     Route: 048
     Dates: start: 20090301
  2. AVASTIN [Suspect]
     Route: 042
     Dates: start: 20090301

REACTIONS (5)
  - ABDOMINAL PAIN [None]
  - DISEASE PROGRESSION [None]
  - HAEMORRHAGIC ASCITES [None]
  - NIPPLE PAIN [None]
  - PALMAR-PLANTAR ERYTHRODYSAESTHESIA SYNDROME [None]
